FAERS Safety Report 25049750 (Version 1)
Quarter: 2025Q1

REPORT INFORMATION
  Report Type: Report from Study
  Country: BR (occurrence: BR)
  Receive Date: 20250307
  Receipt Date: 20250307
  Transmission Date: 20250408
  Serious: Yes (Death, Other)
  Sender: RANBAXY
  Company Number: BR-SUN PHARMACEUTICAL INDUSTRIES LTD-2025R1-497811

PATIENT
  Sex: Female

DRUGS (4)
  1. CARBOPLATIN [Suspect]
     Active Substance: CARBOPLATIN
     Indication: Cervix carcinoma
     Route: 065
  2. PACLITAXEL [Suspect]
     Active Substance: PACLITAXEL
     Indication: Cervix carcinoma
     Route: 065
  3. CISPLATIN [Suspect]
     Active Substance: CISPLATIN
     Indication: Cervix carcinoma
     Route: 065
  4. GEMCITABINE [Suspect]
     Active Substance: GEMCITABINE
     Indication: Cervix carcinoma
     Route: 065

REACTIONS (4)
  - Drug ineffective [Fatal]
  - Exposure during pregnancy [Unknown]
  - Toxicity to various agents [Unknown]
  - Live birth [Unknown]
